FAERS Safety Report 11931158 (Version 2)
Quarter: 2016Q1

REPORT INFORMATION
  Report Type: Report from Study
  Country: US (occurrence: US)
  Receive Date: 20160120
  Receipt Date: 20160127
  Transmission Date: 20160526
  Serious: No
  Sender: FDA-Public Use
  Company Number: US-UCBSA-2016001514

PATIENT
  Sex: Female
  Weight: 53 kg

DRUGS (3)
  1. LACOSAMIDE [Suspect]
     Active Substance: LACOSAMIDE
     Indication: COMPLEX PARTIAL SEIZURES
     Dosage: 150 MG, 2X/DAY (BID)
     Route: 048
  2. DIFLUCAN [Concomitant]
     Active Substance: FLUCONAZOLE
     Indication: PRODUCT USED FOR UNKNOWN INDICATION
     Dosage: 150 MG, ONCE DAILY (QD)
     Route: 048
  3. FOLIC ACID. [Concomitant]
     Active Substance: FOLIC ACID
     Indication: PRODUCT USED FOR UNKNOWN INDICATION
     Dosage: 1 MG, ONCE DAILY (QD)
     Route: 048

REACTIONS (1)
  - Seizure [Not Recovered/Not Resolved]

NARRATIVE: CASE EVENT DATE: 2015
